FAERS Safety Report 8349003-5 (Version None)
Quarter: 2012Q2

REPORT INFORMATION
  Report Type: 
  Country: None (occurrence: None)
  Receive Date: 20120508
  Receipt Date: 20120422
  Transmission Date: 20120825
  Serious: Yes (Hospitalization)
  Sender: FDA-Public Use
  Company Number: 216071

PATIENT
  Age: 57 Year
  Sex: Female
  Weight: 70 kg

DRUGS (1)
  1. INNOHEP [Suspect]
     Indication: THROMBOSIS IN DEVICE
     Dosage: 4500 IU (4500 IU,1 IN 1 TOTAL),INTRAVENOUS
     Route: 042

REACTIONS (1)
  - ARTERIOVENOUS FISTULA THROMBOSIS [None]
